FAERS Safety Report 8903861 (Version 2)
Quarter: 2012Q4

REPORT INFORMATION
  Report Type: 
  Country: KR (occurrence: KR)
  Receive Date: 20121112
  Receipt Date: 20121129
  Transmission Date: 20130627
  Serious: Yes (Death, Other)
  Sender: FDA-Public Use
  Company Number: KR-GILEAD-2012-0064287

PATIENT
  Age: 49 Year
  Sex: Male

DRUGS (6)
  1. TRUVADA [Suspect]
     Indication: HIV INFECTION
     Dosage: 1 DF, QD
     Route: 048
     Dates: start: 20121031
  2. STOCRIN [Suspect]
     Indication: HIV INFECTION
     Dosage: 1 DF, QD
     Route: 048
     Dates: start: 20121031
  3. TRIMETHOPRIM SULFAMETHOXAZOLE [Concomitant]
     Indication: PNEUMOCYSTIS JIROVECI PNEUMONIA
     Dosage: UNK
     Route: 042
     Dates: start: 20121023, end: 20121031
  4. METHYLPREDNISOLONE [Concomitant]
     Indication: PNEUMOCYSTIS JIROVECI PNEUMONIA
     Dosage: UNK
     Route: 042
     Dates: start: 20121023, end: 20121031
  5. ACETYLCYSTEIN [Concomitant]
     Indication: PRODUCTIVE COUGH
     Dosage: UNK
     Route: 042
     Dates: start: 20121023, end: 20121031
  6. RANITIDINE [Concomitant]
     Indication: DYSPEPSIA
     Dosage: UNK
     Dates: start: 20121023, end: 20121031

REACTIONS (4)
  - Cardiac arrest [Fatal]
  - Seizure like phenomena [Not Recovered/Not Resolved]
  - Nausea [Not Recovered/Not Resolved]
  - Vomiting [Not Recovered/Not Resolved]
